FAERS Safety Report 5397687-6 (Version None)
Quarter: 2007Q3

REPORT INFORMATION
  Report Type: 
  Country: None (occurrence: None)
  Receive Date: 20070723
  Receipt Date: 20050321
  Transmission Date: 20080115
  Serious: Yes (Death)
  Sender: FDA-Public Use
  Company Number: B0375791A

PATIENT
  Sex: 0

DRUGS (3)
  1. HYCAMTIN [Suspect]
     Dosage: 1.5 MG/M2; INTRAVENOUS, DAYS
     Route: 042
  2. CYTARABINE [Suspect]
     Dosage: 1 MG/M2; INTRAVENOUS, DAYS
     Route: 042
  3. AMIFOSTINE [Suspect]
     Dosage: 200 MG/M2; INTRAVENOUS
     Route: 042

REACTIONS (1)
  - DRUG TOXICITY [None]
